FAERS Safety Report 6176116-9 (Version None)
Quarter: 2009Q2

REPORT INFORMATION
  Report Type: 
  Country: None (occurrence: None)
  Receive Date: 20090501
  Receipt Date: 20090421
  Transmission Date: 20091009
  Serious: Yes (Hospitalization)
  Sender: FDA-Public Use
  Company Number: US-GENENTECH-251450

PATIENT
  Age: 8 Year
  Sex: Female

DRUGS (1)
  1. SOMATROPIN [Suspect]
     Indication: TURNER'S SYNDROME
     Dosage: 0.05 MG/KG, QD
     Route: 058

REACTIONS (3)
  - FOCAL NODULAR HYPERPLASIA [None]
  - HEPATIC ADENOMA [None]
  - HEPATIC NEOPLASM MALIGNANT [None]
